FAERS Safety Report 4665632-4 (Version None)
Quarter: 2005Q2

REPORT INFORMATION
  Report Type: 
  Country: None (occurrence: None)
  Receive Date: 20050517
  Receipt Date: 20050510
  Transmission Date: 20051028
  Serious: Yes (Death)
  Sender: FDA-Public Use
  Company Number: COV2-2005-00018

PATIENT
  Age: 48 Year
  Sex: Male
  Weight: 128.3 kg

DRUGS (7)
  1. FORSENOL (LANTHANUM CARBONATE 250MG) TABLET CHEWABLE [Suspect]
     Indication: HYPERPHOSPHATAEMIA
     Dosage: 750 MG, 3X/DAY; TID, ORAL
     Route: 048
     Dates: start: 20050307, end: 20050502
  2. NITRO (GLYCERYL TRINITRATE) [Concomitant]
  3. TRAZODONE HCL [Concomitant]
  4. METOPROLOL TARTRATE [Concomitant]
  5. LIPITOR [Concomitant]
  6. DEXFOL [Concomitant]
  7. ASPIRIN [Concomitant]

REACTIONS (1)
  - MYOCARDIAL INFARCTION [None]
